FAERS Safety Report 24146282 (Version 2)
Quarter: 2024Q3

REPORT INFORMATION
  Report Type: Spontaneous
  Country: JP (occurrence: JP)
  Receive Date: 20240729
  Receipt Date: 20240912
  Transmission Date: 20241017
  Serious: Yes (Other)
  Sender: REGENERON
  Company Number: JP-BAYER-2024A108464

PATIENT
  Age: 71 Year
  Sex: Male

DRUGS (1)
  1. EYLEA HD [Suspect]
     Active Substance: AFLIBERCEPT
     Indication: Diabetic retinal oedema
     Dosage: BOTH EYES, UNK, SOLUTION FOR INJECTION, 114.3 MG/ML
     Route: 031
     Dates: start: 20240719, end: 20240719

REACTIONS (3)
  - Ocular hypertension [Recovered/Resolved]
  - Eye inflammation [Recovering/Resolving]
  - Anterior chamber inflammation [Recovering/Resolving]

NARRATIVE: CASE EVENT DATE: 20240722
